FAERS Safety Report 15567685 (Version 1)
Quarter: 2018Q4

REPORT INFORMATION
  Report Type: Spontaneous
  Country: US (occurrence: US)
  Receive Date: 20181030
  Receipt Date: 20181030
  Transmission Date: 20190205
  Serious: No
  Sender: FDA-Public Use
  Company Number: US-SA-2018SA297097

PATIENT
  Age: 64 Year
  Sex: Male

DRUGS (11)
  1. NABUMETONE. [Concomitant]
     Active Substance: NABUMETONE
  2. RAMIPRIL. [Concomitant]
     Active Substance: RAMIPRIL
  3. ASPIRIN [ACETYLSALICYLIC ACID] [Concomitant]
     Active Substance: ASPIRIN
  4. NITROGLYCERINE [Concomitant]
     Active Substance: NITROGLYCERIN
  5. CEPHALEXINE [Concomitant]
     Active Substance: CEPHALEXIN
  6. AUBAGIO [Suspect]
     Active Substance: TERIFLUNOMIDE
     Indication: PRODUCT USED FOR UNKNOWN INDICATION
     Dosage: 14 MG, QD
     Route: 048
     Dates: start: 201808
  7. ACETAMINOPHEN. [Concomitant]
     Active Substance: ACETAMINOPHEN
  8. ESCITALOPRAM [Concomitant]
     Active Substance: ESCITALOPRAM OXALATE
  9. BRILINTA [Concomitant]
     Active Substance: TICAGRELOR
  10. RANEXA [Concomitant]
     Active Substance: RANOLAZINE
  11. VITAMIN B12 [VITAMIN B12 NOS] [Concomitant]

REACTIONS (3)
  - Dyspnoea [Not Recovered/Not Resolved]
  - Hallucination [Not Recovered/Not Resolved]
  - Chest pain [Not Recovered/Not Resolved]
